FAERS Safety Report 22226436 (Version 3)
Quarter: 2023Q2

REPORT INFORMATION
  Report Type: Spontaneous
  Country: JP (occurrence: JP)
  Receive Date: 20230419
  Receipt Date: 20230605
  Transmission Date: 20230721
  Serious: Yes (Death, Other)
  Sender: FDA-Public Use
  Company Number: JP-SAKK-2023SA118657AA

PATIENT
  Age: 76 Year
  Sex: Male

DRUGS (2)
  1. TAXOTERE [Suspect]
     Active Substance: DOCETAXEL
     Indication: Prostate cancer
     Dosage: 103 MG, QD
     Route: 041
     Dates: start: 20230224
  2. DOCETAXEL [Concomitant]
     Active Substance: DOCETAXEL
     Indication: Product used for unknown indication
     Dosage: UNK
     Route: 065

REACTIONS (4)
  - Pulmonary toxicity [Fatal]
  - Febrile neutropenia [Fatal]
  - Lung abscess [Fatal]
  - Pneumonia [Unknown]

NARRATIVE: CASE EVENT DATE: 20230101
